FAERS Safety Report 5542824-3 (Version None)
Quarter: 2007Q4

REPORT INFORMATION
  Report Type: 
  Country: None (occurrence: None)
  Receive Date: 20071210
  Receipt Date: 20071128
  Transmission Date: 20080405
  Serious: Yes (Other)
  Sender: FDA-Public Use
  Company Number: US-PFIZER INC-2007091494

PATIENT
  Sex: Female
  Weight: 94 kg

DRUGS (9)
  1. DETROL LA [Suspect]
     Indication: POLLAKIURIA
     Route: 048
     Dates: start: 20071025, end: 20071025
  2. DETROL LA [Suspect]
     Indication: MICTURITION URGENCY
  3. DETROL LA [Suspect]
     Indication: NOCTURIA
  4. ALBUTEROL [Concomitant]
  5. FORADIL [Concomitant]
  6. ACETYLSALICYLIC ACID SRT [Concomitant]
  7. FEMARA [Concomitant]
  8. AVALIDE [Concomitant]
  9. VITAMINS [Concomitant]

REACTIONS (2)
  - OVARIAN NEOPLASM [None]
  - URINARY RETENTION [None]
